FAERS Safety Report 19766672 (Version 1)
Quarter: 2021Q3

REPORT INFORMATION
  Report Type: Spontaneous
  Country: US (occurrence: US)
  Receive Date: 20210826
  Receipt Date: 20210826
  Transmission Date: 20211014
  Serious: Yes (Hospitalization)
  Sender: FDA-Public Use
  Company Number: None

PATIENT
  Sex: Male

DRUGS (1)
  1. ENTECAVIR 0.5MG SOLCO HEALTHCARE [Suspect]
     Active Substance: ENTECAVIR
     Indication: LIVER TRANSPLANT
     Route: 048
     Dates: start: 20210507

REACTIONS (1)
  - Pneumonia [None]
